FAERS Safety Report 14814644 (Version 1)
Quarter: 2018Q2

REPORT INFORMATION
  Report Type: Spontaneous
  Country: FR (occurrence: FR)
  Receive Date: 20180426
  Receipt Date: 20180426
  Transmission Date: 20180711
  Serious: Yes (Other)
  Sender: FDA-Public Use
  Company Number: FR-MERCK KGAA-2046609

PATIENT
  Age: 36 Year
  Sex: Male

DRUGS (1)
  1. NOVOTHYROX [Suspect]
     Active Substance: LEVOTHYROXINE SODIUM
     Indication: AUTOIMMUNE HYPOTHYROIDISM
     Dates: end: 20170919

REACTIONS (26)
  - Suicidal ideation [Recovered/Resolved]
  - Lethargy [Recovered/Resolved]
  - Apathy [Recovered/Resolved]
  - Emotional distress [Recovered/Resolved]
  - Anxiety [Recovered/Resolved]
  - Arthralgia [Recovered/Resolved]
  - Sleep disorder [Recovered/Resolved]
  - Gastrointestinal disorder [Recovered/Resolved]
  - Orthostatic hypotension [Recovered/Resolved]
  - Fall [Recovered/Resolved]
  - Loss of personal independence in daily activities [Recovered/Resolved]
  - Frustration tolerance decreased [Recovered/Resolved]
  - Blood thyroid stimulating hormone increased [None]
  - Mental impairment [Recovered/Resolved]
  - Muscular weakness [Recovered/Resolved]
  - Fatigue [Recovered/Resolved]
  - Photophobia [Recovered/Resolved]
  - Dizziness [Recovered/Resolved]
  - Irritability [Recovered/Resolved]
  - Vertigo [Recovered/Resolved]
  - Temperature intolerance [Recovered/Resolved]
  - Alopecia [Recovered/Resolved]
  - Tension [Recovered/Resolved]
  - Hyperacusis [Recovered/Resolved]
  - Road traffic accident [Recovered/Resolved]
  - Gait disturbance [Recovered/Resolved]
